APPROVED DRUG PRODUCT: HYDROCORTONE
Active Ingredient: HYDROCORTISONE SODIUM PHOSPHATE
Strength: EQ 50MG BASE/ML **Federal Register determination that product was not discontinued or withdrawn for safety or effectiveness reasons**
Dosage Form/Route: INJECTABLE;INJECTION
Application: N012052 | Product #001
Applicant: MERCK AND CO INC
Approved: Approved Prior to Jan 1, 1982 | RLD: Yes | RS: No | Type: DISCN